FAERS Safety Report 6811521-6 (Version None)
Quarter: 2010Q3

REPORT INFORMATION
  Report Type: 
  Country: None (occurrence: None)
  Receive Date: 20100701
  Receipt Date: 20100621
  Transmission Date: 20110219
  Serious: Yes (Hospitalization, Other)
  Sender: FDA-Public Use
  Company Number: US-AMGEN-US207699

PATIENT
  Sex: Female
  Weight: 86.3 kg

DRUGS (3)
  1. ENBREL [Suspect]
     Indication: RHEUMATOID ARTHRITIS
     Route: 058
     Dates: start: 20060824
  2. PREDNISONE [Concomitant]
     Route: 065
  3. SYNTHROID [Concomitant]
     Route: 065

REACTIONS (6)
  - BONE PAIN [None]
  - FATIGUE [None]
  - GOITRE [None]
  - HEADACHE [None]
  - NECK PAIN [None]
  - THYROID CANCER [None]
